FAERS Safety Report 4575962-2 (Version None)
Quarter: 2005Q1

REPORT INFORMATION
  Report Type: 
  Country: None (occurrence: None)
  Receive Date: 20050209
  Receipt Date: 20050202
  Transmission Date: 20050727
  Serious: Yes (Hospitalization, Other)
  Sender: FDA-Public Use
  Company Number: PHBS2005BR01715

PATIENT
  Age: 75 Year
  Sex: Male
  Weight: 60 kg

DRUGS (5)
  1. POTASSIUM CHLORIDE [Suspect]
     Indication: MUSCLE SPASMS
     Dosage: 2 DF, QMO
     Route: 048
  2. CIMETIDINE [Concomitant]
     Indication: ULCER
     Dosage: 200 MG, QD
     Route: 048
  3. CAPTOPRIL [Concomitant]
     Indication: HYPERTENSION
     Dosage: 25 MG, QD
     Route: 048
  4. PLAMET [Concomitant]
     Dosage: 10 MG, BID
     Route: 048
  5. PANTOPRAZOLE [Concomitant]
     Dosage: 40 MG, QD
     Route: 048

REACTIONS (2)
  - ASTHENIA [None]
  - INFARCTION [None]
